FAERS Safety Report 6888282-8 (Version None)
Quarter: 2010Q3

REPORT INFORMATION
  Report Type: 
  Country: None (occurrence: None)
  Receive Date: 20100730
  Receipt Date: 20100719
  Transmission Date: 20110219
  Serious: Yes (Other)
  Sender: FDA-Public Use
  Company Number: DE-B.I. PHARMACEUTICALS,INC./RIDGEFIELD-2010-DE-03704BY

PATIENT
  Sex: Male

DRUGS (4)
  1. KINZALMONO [Suspect]
     Indication: HYPERTENSION
     Dosage: 80 MG
  2. SORTIS [Concomitant]
     Indication: HYPERLIPIDAEMIA
     Dosage: 40 MG
  3. PLAVIX [Concomitant]
     Indication: STENT PLACEMENT
     Dosage: 20 MG
  4. CLOPIDOGREL [Concomitant]
     Dosage: 75 MG

REACTIONS (2)
  - ATRIOVENTRICULAR BLOCK SECOND DEGREE [None]
  - ELECTROCARDIOGRAM ABNORMAL [None]
